FAERS Safety Report 5517424-1 (Version None)
Quarter: 2007Q4

REPORT INFORMATION
  Report Type: 
  Country: None (occurrence: None)
  Receive Date: 20071114
  Receipt Date: 20071106
  Transmission Date: 20080405
  Serious: Yes (Other)
  Sender: FDA-Public Use
  Company Number: SK-JNJFOC-20071102396

PATIENT
  Sex: Male

DRUGS (5)
  1. REMICADE [Suspect]
     Indication: CROHN'S DISEASE
     Dosage: 5 MG/KG
     Route: 042
  2. PENTASA [Concomitant]
  3. AZATHIOPRINE [Concomitant]
  4. OMEPRAZOLE [Concomitant]
  5. ACIDUM FOLICUM [Concomitant]

REACTIONS (1)
  - BENIGN INTRACRANIAL HYPERTENSION [None]
